FAERS Safety Report 8880429 (Version 1)
Quarter: 2012Q4

REPORT INFORMATION
  Report Type: 
  Country: US (occurrence: US)
  Receive Date: 20121031
  Receipt Date: 20121031
  Transmission Date: 20130627
  Serious: No
  Sender: FDA-Public Use
  Company Number: US-ASTRAZENECA-2012SE79182

PATIENT
  Age: 69 Year
  Sex: Female
  Weight: 83.5 kg

DRUGS (2)
  1. SYMBICORT [Suspect]
     Indication: CHRONIC OBSTRUCTIVE PULMONARY DISEASE
     Dosage: 320 MCG, TWO TIMES A DAY
     Route: 055
     Dates: start: 2007
  2. SYMBICORT [Suspect]
     Indication: BRONCHITIS CHRONIC
     Dosage: 320 MCG, TWO TIMES A DAY
     Route: 055
     Dates: start: 2007

REACTIONS (2)
  - Dyspnoea [Unknown]
  - Drug dose omission [Unknown]
